FAERS Safety Report 8892229 (Version 1)
Quarter: 2012Q4

REPORT INFORMATION
  Report Type: Spontaneous
  Country: US (occurrence: None)
  Receive Date: 20121031
  Receipt Date: 20121031
  Transmission Date: 20130627
  Serious: Yes (Other)
  Sender: FDA-Public Use
  Company Number: 2012PL000181

PATIENT
  Age: 29 Year
  Sex: Female
  Weight: 69.85 kg

DRUGS (4)
  1. LOTRONEX [Suspect]
     Indication: DIARRHEA
     Dates: start: 20120926, end: 20121005
  2. ACTIVELLA [Concomitant]
  3. PROBENECID [Concomitant]
  4. COLCHICINE [Concomitant]

REACTIONS (3)
  - Constipation [None]
  - Colitis ischaemic [None]
  - Blood potassium decreased [None]
